FAERS Safety Report 16146611 (Version 2)
Quarter: 2019Q3

REPORT INFORMATION
  Report Type: Other
  Country: CA (occurrence: CA)
  Receive Date: 20190402
  Receipt Date: 20190828
  Transmission Date: 20191004
  Serious: Yes (Other)
  Sender: FDA-Public Use
  Company Number: CA-COLGATE PALMOLIVE COMPANY-20190300880

PATIENT

DRUGS (10)
  1. DEXPANTHENOL; ERGOCALCIFEROL; FOLIC ACID; NICOTINAMIDE; RIBOFLAVIN; TH [Suspect]
     Active Substance: FOLIC ACID\VITAMINS
     Route: 064
  2. CHLORHEXIDINE UNSPECIFIED [Suspect]
     Active Substance: CHLORHEXIDINE
     Route: 064
  3. DICLECTIN [Suspect]
     Active Substance: DOXYLAMINE SUCCINATE\PYRIDOXINE HYDROCHLORIDE
     Route: 064
  4. METFORMIN [Suspect]
     Active Substance: METFORMIN HYDROCHLORIDE
     Route: 064
  5. NIFEDIPINE. [Suspect]
     Active Substance: NIFEDIPINE
     Route: 064
  6. ERGOCALCIFEROL. [Suspect]
     Active Substance: ERGOCALCIFEROL
     Dosage: UNK
     Route: 064
  7. SILDENAFIL. [Suspect]
     Active Substance: SILDENAFIL
     Route: 064
  8. ASA [Suspect]
     Active Substance: ASPIRIN
     Route: 064
  9. INSULIN [Suspect]
     Active Substance: INSULIN NOS
     Route: 064
  10. METHYLDOPA. [Suspect]
     Active Substance: METHYLDOPA
     Route: 064

REACTIONS (2)
  - Foetal exposure during pregnancy [Recovered/Resolved]
  - Premature baby [Unknown]
